FAERS Safety Report 4667657-1 (Version None)
Quarter: 2005Q2

REPORT INFORMATION
  Report Type: 
  Country: None (occurrence: None)
  Receive Date: 20050519
  Receipt Date: 20050519
  Transmission Date: 20051028
  Serious: No
  Sender: FDA-Public Use
  Company Number: None

PATIENT
  Age: 40 Year
  Sex: Male
  Weight: 83.9154 kg

DRUGS (3)
  1. LEXAPRO [Suspect]
     Indication: DEPRESSION
     Dosage: 10 MG DAILY ORAL
     Route: 048
  2. ALTACE [Suspect]
     Indication: HYPERTENSION
     Dosage: 2.5  DAILY ORAL
     Route: 048
  3. PREVACID [Concomitant]

REACTIONS (4)
  - ABSCESS [None]
  - DIVERTICULAR PERFORATION [None]
  - GRANULOMATOUS LIVER DISEASE [None]
  - RENAL FAILURE ACUTE [None]
